FAERS Safety Report 24734704 (Version 1)
Quarter: 2024Q4

REPORT INFORMATION
  Report Type: Other
  Country: IN (occurrence: IN)
  Receive Date: 20241214
  Receipt Date: 20241214
  Transmission Date: 20250114
  Serious: Yes (Life-Threatening)
  Sender: B BRAUN
  Company Number: IN-B.Braun Medical Inc.-2167084

PATIENT
  Age: 70 Year
  Sex: Female

DRUGS (4)
  1. CEFTAZIDIME [Suspect]
     Active Substance: CEFTAZIDIME
     Indication: Pseudomonas infection
  2. CIPROFLOXACIN [Suspect]
     Active Substance: CIPROFLOXACIN
  3. AMIKACIN SULFATE [Suspect]
     Active Substance: AMIKACIN SULFATE
  4. VANCOMYCIN HYDROCHLORIDE [Suspect]
     Active Substance: VANCOMYCIN HYDROCHLORIDE

REACTIONS (1)
  - Drug ineffective [Unknown]
